FAERS Safety Report 23093992 (Version 1)
Quarter: 2023Q4

REPORT INFORMATION
  Report Type: Spontaneous
  Country: CN (occurrence: CN)
  Receive Date: 20231023
  Receipt Date: 20231023
  Transmission Date: 20240110
  Serious: Yes (Other)
  Sender: FDA-Public Use
  Company Number: None

PATIENT
  Sex: Male
  Weight: 64.2 kg

DRUGS (6)
  1. LEVEMIR [Suspect]
     Active Substance: INSULIN DETEMIR
     Dosage: 12 IU, QD(RESTARTED)
     Route: 058
     Dates: start: 20230809, end: 20230925
  2. LEVEMIR [Suspect]
     Active Substance: INSULIN DETEMIR
     Dosage: 12 IU, QD(STOPPED)
     Route: 058
     Dates: end: 20230802
  3. LEVEMIR [Suspect]
     Active Substance: INSULIN DETEMIR
     Indication: Diabetes mellitus
     Dosage: 12 IU, QD
     Route: 058
     Dates: start: 20230610
  4. RYZODEG 70/30 [Suspect]
     Active Substance: INSULIN ASPART\INSULIN DEGLUDEC
     Indication: Diabetes mellitus
     Dosage: 20 IU, BID
     Route: 058
     Dates: start: 20230802, end: 20230809
  5. INSULIN LISPRO [Suspect]
     Active Substance: INSULIN LISPRO
     Indication: Diabetes mellitus
     Dosage: 10 IU, TID
     Route: 058
     Dates: start: 20230610, end: 20230802
  6. INSULIN LISPRO [Suspect]
     Active Substance: INSULIN LISPRO
     Dosage: 10 IU, TID
     Route: 058
     Dates: start: 20230809, end: 20230925

REACTIONS (1)
  - Drug eruption [Recovering/Resolving]
